FAERS Safety Report 4305105-1 (Version None)
Quarter: 2004Q1

REPORT INFORMATION
  Report Type: 
  Country: None (occurrence: None)
  Receive Date: 20040224
  Receipt Date: 20040224
  Transmission Date: 20041129
  Serious: Yes (Other)
  Sender: FDA-Public Use
  Company Number: None

PATIENT
  Age: 78 Year
  Sex: Male
  Weight: 93 kg

DRUGS (7)
  1. OXYBUTYNIN [Suspect]
  2. RABEPRAZOLE SODIUM [Concomitant]
  3. TOLTERODINE TARTRATE [Concomitant]
  4. TERAZOSIN HCL [Concomitant]
  5. FLUNISOLIDE [Concomitant]
  6. LOVASTATIN [Concomitant]
  7. TRAMADOL HCL [Concomitant]

REACTIONS (1)
  - CONSTIPATION [None]
